FAERS Safety Report 6600029-9 (Version None)
Quarter: 2010Q1

REPORT INFORMATION
  Report Type: 
  Country: None (occurrence: None)
  Receive Date: 20100217
  Receipt Date: 20100202
  Transmission Date: 20100710
  Serious: Yes (Hospitalization, Other)
  Sender: FDA-Public Use
  Company Number: FR0201000028

PATIENT
  Age: 48 Year
  Sex: Female

DRUGS (7)
  1. PACLITAXEL          (MANUFACTURER UNKNOWN) [Suspect]
     Indication: BREAST CANCER
     Dosage: (1/1 WEEKS)
  2. DOCETAXEL (MANUFACTURER UNKNOWN) [Suspect]
     Indication: BREAST CANCER
     Dates: start: 20071001, end: 20080301
  3. CAPECITABINE (MANUFACTURER UNKNOWN) [Suspect]
     Indication: BREAST CANCER
     Dates: start: 20070501, end: 20070601
  4. CAPECITABINE (MANUFACTURER UNKNOWN) [Suspect]
     Indication: BREAST CANCER
     Dates: start: 20080601, end: 20080801
  5. VINORELBINE (VINORELBINE) (VINORELBINE) [Concomitant]
  6. LAPATINIB [Concomitant]
  7. TRASTUZUMAB [Concomitant]

REACTIONS (7)
  - ABDOMINAL PAIN [None]
  - DRUG INTOLERANCE [None]
  - JOINT SWELLING [None]
  - LETHARGY [None]
  - MALIGNANT NEOPLASM PROGRESSION [None]
  - UTERINE HAEMORRHAGE [None]
  - VOMITING [None]
